FAERS Safety Report 8928582 (Version 1)
Quarter: 2012Q4

REPORT INFORMATION
  Report Type: 
  Country: US (occurrence: US)
  Receive Date: 20121127
  Receipt Date: 20121127
  Transmission Date: 20130627
  Serious: No
  Sender: FDA-Public Use
  Company Number: US-009507513-1211USA007609

PATIENT
  Sex: Female

DRUGS (9)
  1. MIRALAX [Suspect]
     Indication: PRODUCT USED FOR UNKNOWN INDICATION
     Dosage: UNK, Unknown
     Route: 048
     Dates: start: 201211
  2. HYDROCHLOROTHIAZIDE (+) LISINOPRIL [Suspect]
     Dosage: UNK, bid
  3. PREMARIN [Suspect]
     Dosage: UNK, bid
  4. ASPIRIN [Suspect]
  5. SIMVASTATIN [Suspect]
  6. CALCIUM CITRATE [Suspect]
  7. OMEGA-3 MARINE TRIGLYCERIDES [Suspect]
  8. CALCIUM (UNSPECIFIED) [Suspect]
  9. CENTRUM SILVER [Suspect]

REACTIONS (2)
  - Nausea [Unknown]
  - Malaise [Unknown]
